FAERS Safety Report 24971776 (Version 1)
Quarter: 2025Q1

REPORT INFORMATION
  Report Type: Report from Study
  Country: IT (occurrence: IT)
  Receive Date: 20250214
  Receipt Date: 20250214
  Transmission Date: 20250409
  Serious: Yes (Other)
  Sender: VERITY PHARMACEUTICALS INC.
  Company Number: IT-VER-202500001

PATIENT
  Sex: Female

DRUGS (4)
  1. TRIPTORELIN [Suspect]
     Active Substance: TRIPTORELIN
     Indication: Hormone receptor positive breast cancer
     Dosage: POWDER AND SOLVENT FOR SUSPENSION FOR INJECTION
     Route: 030
  2. TAMOXIFEN [Suspect]
     Active Substance: TAMOXIFEN
     Indication: Hormone receptor positive breast cancer
     Route: 065
  3. LETROZOLE [Suspect]
     Active Substance: LETROZOLE
     Indication: Hormone receptor positive breast cancer
     Route: 065
  4. ZOLEDRONIC ACID [Suspect]
     Active Substance: ZOLEDRONIC ACID
     Indication: Hormone receptor positive breast cancer
     Route: 065

REACTIONS (47)
  - Osteoporosis [Unknown]
  - Hypersensitivity [Unknown]
  - Arrhythmia [Unknown]
  - Arthralgia [Unknown]
  - Blood disorder [Unknown]
  - Bone pain [Unknown]
  - Myocardial ischaemia [Unknown]
  - Cardiovascular disorder [Unknown]
  - Cerebral ischaemia [Unknown]
  - Depression [Unknown]
  - Dermatosis [Unknown]
  - Dyspareunia [Unknown]
  - Embolism [Unknown]
  - Endocrine disorder [Unknown]
  - Endometrial disorder [Unknown]
  - Fatigue [Unknown]
  - Pyrexia [Unknown]
  - Headache [Unknown]
  - Haemorrhage [Unknown]
  - Liver disorder [Unknown]
  - Hot flush [Unknown]
  - Hypercalcaemia [Unknown]
  - Hypercholesterolaemia [Unknown]
  - Hyperglycaemia [Unknown]
  - Hypertension [Unknown]
  - Hypertriglyceridaemia [Unknown]
  - Infection [Unknown]
  - Insomnia [Unknown]
  - Mood altered [Unknown]
  - Myalgia [Unknown]
  - Nausea [Unknown]
  - Nervous system disorder [Unknown]
  - Peripheral motor neuropathy [Unknown]
  - Peripheral sensory neuropathy [Unknown]
  - Ocular discomfort [Unknown]
  - Osteonecrosis of jaw [Unknown]
  - Pain [Unknown]
  - Lung disorder [Unknown]
  - Renal disorder [Unknown]
  - Hyperhidrosis [Unknown]
  - Thrombosis [Unknown]
  - Vaginal haemorrhage [Unknown]
  - Vulvovaginal dryness [Unknown]
  - Vaginal infection [Unknown]
  - Vertigo [Unknown]
  - Weight increased [Unknown]
  - Weight decreased [Unknown]
